FAERS Safety Report 17798706 (Version 1)
Quarter: 2020Q2

REPORT INFORMATION
  Report Type: Spontaneous
  Country: US (occurrence: US)
  Receive Date: 20200518
  Receipt Date: 20200518
  Transmission Date: 20200714
  Serious: No
  Sender: FDA-Public Use
  Company Number: US-BRAINTREE LABORATORIES-190580

PATIENT
  Age: 79 Year
  Sex: Male
  Weight: 92.53 kg

DRUGS (1)
  1. PEG-3350, SODIUM CHLORIDE, SODIUM BICARBONATE AND POTASSIUM CHLORIDE F [Suspect]
     Active Substance: POLYETHYLENE GLYCOL 3350\POTASSIUM CHLORIDE\SODIUM BICARBONATE\SODIUM CHLORIDE
     Indication: COLONOSCOPY
     Dosage: 4L
     Route: 048
     Dates: start: 20191014, end: 20191014

REACTIONS (3)
  - Feeling cold [None]
  - Anorectal discomfort [None]
  - Vomiting [None]

NARRATIVE: CASE EVENT DATE: 20191014
